FAERS Safety Report 11159923 (Version 3)
Quarter: 2015Q2

REPORT INFORMATION
  Report Type: Report from Study
  Country: US (occurrence: US)
  Receive Date: 20150603
  Receipt Date: 20150617
  Transmission Date: 20150821
  Serious: Yes (Hospitalization)
  Sender: FDA-Public Use
  Company Number: US-ACTELION-A-NJ2015-116157

PATIENT
  Age: 64 Year
  Sex: Female

DRUGS (6)
  1. ADCIRCA [Concomitant]
     Active Substance: TADALAFIL
  2. VENTAVIS [Suspect]
     Active Substance: ILOPROST
     Indication: PULMONARY ARTERIAL HYPERTENSION
     Dosage: 5 MCG 6-9 TIMES DAILY
     Route: 055
     Dates: start: 20150401
  3. VENTAVIS [Suspect]
     Active Substance: ILOPROST
     Dosage: 2.5 MCG, 6-9X/DAY
     Route: 055
     Dates: start: 20150317
  4. WARFARIN [Concomitant]
     Active Substance: WARFARIN
  5. MACITENTAN [Suspect]
     Active Substance: MACITENTAN
     Indication: PULMONARY ARTERIAL HYPERTENSION
     Dosage: 10 MG, QD
     Route: 048
     Dates: start: 20140724
  6. OXYGEN. [Concomitant]
     Active Substance: OXYGEN

REACTIONS (7)
  - Fluid overload [Unknown]
  - Dizziness [Unknown]
  - Device issue [Unknown]
  - Respiratory tract infection [Unknown]
  - Dyspnoea [Unknown]
  - Oxygen saturation decreased [Unknown]
  - Headache [Unknown]
